FAERS Safety Report 5800139-X (Version None)
Quarter: 2008Q3

REPORT INFORMATION
  Report Type: 
  Country: None (occurrence: None)
  Receive Date: 20080702
  Receipt Date: 20080702
  Transmission Date: 20090109
  Serious: Yes (Other)
  Sender: FDA-Public Use
  Company Number: None

PATIENT
  Sex: Male

DRUGS (9)
  1. DIGITEK 0.25MG MYLAN/BERTEK [Suspect]
     Dosage: 1 TABLET ORALLY EVERY MORNING SINCE 4/24/08
     Dates: start: 20080424
  2. TOPROL-XL [Concomitant]
  3. FLOMAX [Concomitant]
  4. LOVASTATIN [Concomitant]
  5. NEXIUM [Concomitant]
  6. SPIRONOLACT/HCTZ [Concomitant]
  7. AMITRIP [Concomitant]
  8. HCL/CHLORDIAZEPOXIDE [Concomitant]
  9. DIOVAN [Concomitant]

REACTIONS (2)
  - DIZZINESS [None]
  - PHARMACEUTICAL PRODUCT COMPLAINT [None]
